FAERS Safety Report 9213332 (Version 1)
Quarter: 2013Q1

REPORT INFORMATION
  Report Type: Spontaneous
  Country: US (occurrence: None)
  Receive Date: 20120820
  Receipt Date: 20120820
  Transmission Date: 20140127
  Serious: No
  Sender: FDA-Public Use
  Company Number: 1000031330

PATIENT
  Sex: Female

DRUGS (3)
  1. VIIBRYD [Suspect]
     Indication: HOT FLUSH
     Route: 048
     Dates: start: 201205, end: 2012
  2. VIIBRYD [Suspect]
     Route: 048
     Dates: start: 2012, end: 20120611
  3. LORATADINE(LORATADINE)(LORATADINE) [Concomitant]

REACTIONS (5)
  - Vertigo [None]
  - Off label use [None]
  - Sexual dysfunction [None]
  - Abnormal dreams [None]
  - Somnolence [None]
